FAERS Safety Report 9827418 (Version 1)
Quarter: 2014Q1

REPORT INFORMATION
  Report Type: Spontaneous
  Country: US (occurrence: US)
  Receive Date: 20140117
  Receipt Date: 20140117
  Transmission Date: 20141002
  Serious: No
  Sender: FDA-Public Use
  Company Number: US-BAYER-2014-008016

PATIENT
  Age: 32 Year
  Sex: Male
  Weight: 131.52 kg

DRUGS (3)
  1. ALEVE CAPLET [Suspect]
     Indication: GOUTY ARTHRITIS
     Dosage: 2 DF, PRN
     Route: 048
     Dates: start: 201312
  2. INDOCIN [Concomitant]
     Dosage: UNK
  3. MOBIC [Concomitant]
     Dosage: UNK

REACTIONS (1)
  - Off label use [Not Recovered/Not Resolved]
